FAERS Safety Report 10195568 (Version 1)
Quarter: 2014Q2

REPORT INFORMATION
  Report Type: Spontaneous
  Country: DE (occurrence: DE)
  Receive Date: 20140527
  Receipt Date: 20140527
  Transmission Date: 20141212
  Serious: Yes (Other)
  Sender: FDA-Public Use
  Company Number: GXKR2014DE001926

PATIENT
  Sex: 0

DRUGS (1)
  1. METOHEXAL SUCC [Suspect]
     Route: 064

REACTIONS (2)
  - Foetal heart rate abnormal [Unknown]
  - Exposure during pregnancy [Unknown]
